FAERS Safety Report 16564860 (Version 1)
Quarter: 2019Q3

REPORT INFORMATION
  Report Type: Spontaneous
  Country: US (occurrence: US)
  Receive Date: 20190530
  Receipt Date: 20190530
  Transmission Date: 20191004
  Serious: No
  Sender: FDA-Public Use
  Company Number: None

PATIENT
  Sex: Female

DRUGS (1)
  1. CAPECITABINE. [Suspect]
     Active Substance: CAPECITABINE
     Indication: COLON CANCER
     Route: 048
     Dates: start: 20190511

REACTIONS (7)
  - Diarrhoea [None]
  - Vomiting [None]
  - Pain [None]
  - Nasopharyngitis [None]
  - Nausea [None]
  - Nephropathy [None]
  - Rash [None]
